FAERS Safety Report 4876492-0 (Version None)
Quarter: 2005Q4

REPORT INFORMATION
  Report Type: 
  Country: None (occurrence: None)
  Receive Date: 20051206
  Receipt Date: 20050830
  Transmission Date: 20060501
  Serious: Yes (Other)
  Sender: FDA-Public Use
  Company Number: USA0507101783

PATIENT
  Age: 23 Year
  Sex: Female

DRUGS (5)
  1. CYMBALTA [Suspect]
     Indication: PAIN IN EXTREMITY
     Dosage: 60 MG DAY
     Dates: start: 20050521, end: 20050701
  2. LEXAPRO [Concomitant]
  3. ULTRAM [Concomitant]
  4. LUPRON [Concomitant]
  5. ZANAFLEX [Concomitant]

REACTIONS (2)
  - DEPRESSION [None]
  - SUICIDAL IDEATION [None]
